APPROVED DRUG PRODUCT: NIACIN
Active Ingredient: NIACIN
Strength: 1GM
Dosage Form/Route: TABLET, EXTENDED RELEASE;ORAL
Application: A209156 | Product #003
Applicant: JUBILANT GENERICS LTD
Approved: May 14, 2018 | RLD: No | RS: No | Type: DISCN